FAERS Safety Report 6599904-3 (Version None)
Quarter: 2010Q1

REPORT INFORMATION
  Report Type: 
  Country: None (occurrence: None)
  Receive Date: 20100217
  Receipt Date: 20100203
  Transmission Date: 20100710
  Serious: Yes (Other)
  Sender: FDA-Public Use
  Company Number: 1000011812

PATIENT
  Age: 47 Year
  Sex: Female

DRUGS (6)
  1. ESCITALOPRAM [Suspect]
     Indication: DEPRESSION
     Dosage: 10 MG (10 MG, 1 IN 1 D), ORAL
     Route: 048
     Dates: start: 20100128, end: 20100202
  2. ESCITALOPRAM [Suspect]
     Indication: DEPRESSION
     Dosage: 15 MG (15 MG, 1 IN 1 D), ORAL
     Route: 048
     Dates: start: 20100203, end: 20100203
  3. LORAZEPAM [Concomitant]
  4. ASPIRIN [Concomitant]
  5. OXYCODONE HCL EXTENDED-RELEASE [Concomitant]
  6. NICOTINE PATCH (POLULTICE OR PATCH) [Concomitant]

REACTIONS (1)
  - SKIN EXFOLIATION [None]
